FAERS Safety Report 20656161 (Version 1)
Quarter: 2022Q1

REPORT INFORMATION
  Report Type: Spontaneous
  Country: JP (occurrence: JP)
  Receive Date: 20220330
  Receipt Date: 20220330
  Transmission Date: 20220423
  Serious: Yes (Hospitalization, Other)
  Sender: FDA-Public Use
  Company Number: JP-BRISTOL-MYERS SQUIBB COMPANY-2022-012325

PATIENT
  Age: 62 Year
  Sex: Male

DRUGS (4)
  1. YERVOY [Suspect]
     Active Substance: IPILIMUMAB
     Indication: Squamous cell carcinoma
     Route: 065
     Dates: start: 202103
  2. OPDIVO [Suspect]
     Active Substance: NIVOLUMAB
     Indication: Squamous cell carcinoma
     Route: 065
     Dates: start: 202103
  3. CARBOPLATIN [Suspect]
     Active Substance: CARBOPLATIN
     Indication: Squamous cell carcinoma
     Route: 065
     Dates: start: 202103
  4. PACLITAXEL [Suspect]
     Active Substance: PACLITAXEL
     Indication: Squamous cell carcinoma
     Route: 065
     Dates: start: 202103

REACTIONS (9)
  - Malaise [Recovering/Resolving]
  - Hypopituitarism [Unknown]
  - Pain [Unknown]
  - Altered state of consciousness [Recovering/Resolving]
  - Pyrexia [Unknown]
  - Staphylococcal sepsis [Unknown]
  - Infective spondylitis [Unknown]
  - Seizure [Unknown]
  - Encephalopathy [Unknown]
